FAERS Safety Report 4623672-5 (Version None)
Quarter: 2005Q1

REPORT INFORMATION
  Report Type: 
  Country: None (occurrence: None)
  Receive Date: 20050331
  Receipt Date: 20050321
  Transmission Date: 20050727
  Serious: Yes (Other)
  Sender: FDA-Public Use
  Company Number: US-JNJFOC-20050104544

PATIENT
  Sex: Female
  Weight: 58.97 kg

DRUGS (6)
  1. REMICADE [Suspect]
     Route: 042
  2. REMICADE [Suspect]
     Indication: RHEUMATOID ARTHRITIS
     Route: 042
  3. METHOTREXATE [Concomitant]
     Indication: INFLAMMATION
     Dosage: ON FOR 13 YEARS WITH THE LAST DOSE NOV OR DEC 2004.
  4. CALCIUM GLUCONATE [Concomitant]
  5. FOLIC ACID [Concomitant]
  6. VITAMINS [Concomitant]

REACTIONS (2)
  - LYMPHADENOPATHY [None]
  - LYMPHOMA [None]
